FAERS Safety Report 11568915 (Version 1)
Quarter: 2015Q3

REPORT INFORMATION
  Report Type: Spontaneous
  Country: US (occurrence: None)
  Receive Date: 20150928
  Receipt Date: 20150928
  Transmission Date: 20151125
  Serious: Yes (Other)
  Sender: FDA-Public Use
  Company Number: None

PATIENT
  Age: 68 Year
  Sex: Male
  Weight: 131.54 kg

DRUGS (11)
  1. METFORMIN [Concomitant]
     Active Substance: METFORMIN HYDROCHLORIDE
  2. VITAMIN D [Concomitant]
     Active Substance: CHOLECALCIFEROL
  3. MULT VITAMIN [Concomitant]
  4. DIOVAN [Concomitant]
     Active Substance: VALSARTAN
  5. BYSTOLIC [Concomitant]
     Active Substance: NEBIVOLOL HYDROCHLORIDE
  6. CYMBALTA [Concomitant]
     Active Substance: DULOXETINE HYDROCHLORIDE
  7. MORPHINE [Concomitant]
     Active Substance: MORPHINE
  8. PANTRAPZOLE [Concomitant]
  9. MORPHINE 30 MG ER ZYRUS [Suspect]
     Active Substance: MORPHINE
     Indication: NEUROPATHY PERIPHERAL
     Dosage: 1 PILL EVERY 12 HRS
     Route: 048
  10. ASPRIN [Concomitant]
     Active Substance: ASPIRIN
  11. LIVALO [Concomitant]
     Active Substance: PITAVASTATIN CALCIUM

REACTIONS (5)
  - Hyperhidrosis [None]
  - Nausea [None]
  - Vomiting [None]
  - Eye movement disorder [None]
  - Product substitution issue [None]

NARRATIVE: CASE EVENT DATE: 20150926
